FAERS Safety Report 6014380-7 (Version None)
Quarter: 2008Q4

REPORT INFORMATION
  Report Type: 
  Country: None (occurrence: None)
  Receive Date: 20081219
  Receipt Date: 20080521
  Transmission Date: 20090506
  Serious: No
  Sender: FDA-Public Use
  Company Number: A0729048A

PATIENT
  Age: 67 Year
  Sex: Male

DRUGS (3)
  1. AVODART [Suspect]
     Indication: BENIGN PROSTATIC HYPERPLASIA
     Dosage: .5MCG PER DAY
     Route: 048
     Dates: start: 20060501, end: 20080517
  2. UROXATRAL [Suspect]
     Dosage: 10MG PER DAY
     Route: 065
     Dates: start: 20060501, end: 20070501
  3. NO CONCURRENT MEDICATION [Concomitant]

REACTIONS (2)
  - DYSURIA [None]
  - SEMEN VOLUME DECREASED [None]
